FAERS Safety Report 12464139 (Version 2)
Quarter: 2016Q4

REPORT INFORMATION
  Report Type: Spontaneous
  Country: US (occurrence: US)
  Receive Date: 20160614
  Receipt Date: 20161107
  Transmission Date: 20170207
  Serious: No
  Sender: FDA-Public Use
  Company Number: US-GLAXOSMITHKLINE-US2016076690

PATIENT
  Age: 58 Year
  Sex: Male

DRUGS (17)
  1. COLCRYS [Concomitant]
     Active Substance: COLCHICINE
  2. LEVAQUIN [Concomitant]
     Active Substance: LEVOFLOXACIN
  3. NORCO [Concomitant]
     Active Substance: ACETAMINOPHEN\HYDROCODONE BITARTRATE
  4. FLOVENT DISKUS [Suspect]
     Active Substance: FLUTICASONE PROPIONATE
     Indication: CHRONIC OBSTRUCTIVE PULMONARY DISEASE
     Dosage: 50 DF, BID
     Route: 055
     Dates: start: 201605
  5. GABAPENTIN. [Concomitant]
     Active Substance: GABAPENTIN
  6. METHYLPREDNISOLON [Concomitant]
     Active Substance: METHYLPREDNISOLONE
  7. SYNTHROID [Concomitant]
     Active Substance: LEVOTHYROXINE SODIUM
  8. TOPROL XL [Concomitant]
     Active Substance: METOPROLOL SUCCINATE
  9. PRAVASTATIN. [Concomitant]
     Active Substance: PRAVASTATIN
  10. TRAMADOL. [Concomitant]
     Active Substance: TRAMADOL
  11. AMLODIPINE [Concomitant]
     Active Substance: AMLODIPINE BESYLATE
  12. FENOFIBRATE. [Concomitant]
     Active Substance: FENOFIBRATE
  13. FLONASE [Concomitant]
     Active Substance: FLUTICASONE PROPIONATE
  14. PROVENTIL [Concomitant]
     Active Substance: ALBUTEROL
  15. GLUCOPHAGE [Concomitant]
     Active Substance: METFORMIN HYDROCHLORIDE
  16. LOSARTIN [Concomitant]
     Active Substance: LOSARTAN
  17. MOTRIN [Concomitant]
     Active Substance: IBUPROFEN

REACTIONS (1)
  - Extra dose administered [Unknown]

NARRATIVE: CASE EVENT DATE: 20160527
